FAERS Safety Report 4298707-2 (Version None)
Quarter: 2004Q1

REPORT INFORMATION
  Report Type: 
  Country: None (occurrence: None)
  Receive Date: 20040126
  Receipt Date: 20031021
  Transmission Date: 20041129
  Serious: No
  Sender: FDA-Public Use
  Company Number: USA031050491

PATIENT
  Age: 9 Year
  Sex: Male
  Weight: 34 kg

DRUGS (2)
  1. STRATTERA [Suspect]
     Indication: ATTENTION DEFICIT/HYPERACTIVITY DISORDER
     Dosage: 40 MG/1 IN THE EVENING
     Dates: start: 20030701, end: 20031018
  2. ADDERALL 10 [Concomitant]

REACTIONS (1)
  - COMMUNICATION DISORDER [None]
